FAERS Safety Report 4897688-8 (Version None)
Quarter: 2006Q1

REPORT INFORMATION
  Report Type: 
  Country: None (occurrence: None)
  Receive Date: 20060130
  Receipt Date: 20060117
  Transmission Date: 20060701
  Serious: Yes (Other)
  Sender: FDA-Public Use
  Company Number: 2006009367

PATIENT
  Age: 68 Year
  Sex: Female
  Weight: 72.5755 kg

DRUGS (5)
  1. LIPITOR [Suspect]
     Indication: BLOOD CHOLESTEROL INCREASED
     Dosage: 20 MG (20 MG, 1 IN 1 D)
     Dates: start: 20050101
  2. LIPITOR [Suspect]
     Indication: LDL/HDL RATIO
     Dosage: 20 MG (20 MG, 1 IN 1 D)
     Dates: start: 20050101
  3. GABAPENTIN [Suspect]
     Indication: NEURALGIA
     Dates: start: 20050101
  4. ACTONEL [Concomitant]
  5. NAPROXEN [Concomitant]

REACTIONS (13)
  - CHROMATURIA [None]
  - DISTURBANCE IN ATTENTION [None]
  - DIZZINESS [None]
  - DRUG INTOLERANCE [None]
  - FATIGUE [None]
  - FEELING ABNORMAL [None]
  - INTERVERTEBRAL DISC DISORDER [None]
  - LUMBAR SPINAL STENOSIS [None]
  - NEURALGIA [None]
  - PAIN IN EXTREMITY [None]
  - PERFORMANCE STATUS DECREASED [None]
  - SEDATION [None]
  - URINE ODOUR ABNORMAL [None]
